FAERS Safety Report 5064978-8 (Version None)
Quarter: 2006Q3

REPORT INFORMATION
  Report Type: 
  Country: None (occurrence: None)
  Receive Date: 20060728
  Receipt Date: 20060725
  Transmission Date: 20061208
  Serious: Yes (Other)
  Sender: FDA-Public Use
  Company Number: NL-BOEHRINGER INGELHEIM PHARMACEUTICALS, INC.-2006-NL-00204NL

PATIENT
  Sex: Female

DRUGS (2)
  1. SPIRIVA [Suspect]
     Indication: BRONCHITIS
     Dates: start: 20060623
  2. AMOXICILLIN [Suspect]
     Indication: BRONCHITIS
     Dates: start: 20060623, end: 20060626

REACTIONS (3)
  - PARAESTHESIA ORAL [None]
  - PHARYNGEAL OEDEMA [None]
  - STOMATITIS [None]
